FAERS Safety Report 17053757 (Version 1)
Quarter: 2019Q4

REPORT INFORMATION
  Report Type: Spontaneous
  Country: SE (occurrence: SE)
  Receive Date: 20191120
  Receipt Date: 20191120
  Transmission Date: 20200122
  Serious: Yes (Hospitalization)
  Sender: FDA-Public Use
  Company Number: SE-MYLANLABS-2019M1110465

PATIENT
  Age: 14 Year
  Sex: Female

DRUGS (2)
  1. SERTRALINE [Concomitant]
     Active Substance: SERTRALINE HYDROCHLORIDE
     Dosage: ^150 MG/DAG^
  2. LERGIGAN (PROMETHAZINE HYDROCHLORIDE) [Suspect]
     Active Substance: PROMETHAZINE HYDROCHLORIDE
     Indication: PRODUCT USED FOR UNKNOWN INDICATION
     Dosage: 625 MILLIGRAM (TAGIT 25 ST, STAR PA LERGIGAN 25 MG)
     Route: 048
     Dates: start: 20190220, end: 20190220

REACTIONS (6)
  - Intentional self-injury [Unknown]
  - Confusional state [Unknown]
  - Intentional overdose [Unknown]
  - Agitation [Recovered/Resolved]
  - Somnolence [Unknown]
  - Toxicity to various agents [Unknown]

NARRATIVE: CASE EVENT DATE: 20190220
